FAERS Safety Report 23785505 (Version 2)
Quarter: 2024Q3

REPORT INFORMATION
  Report Type: Report from Study
  Country: BR (occurrence: BR)
  Receive Date: 20240425
  Receipt Date: 20240923
  Transmission Date: 20241017
  Serious: Yes (Other)
  Sender: ELI LILLY AND CO
  Company Number: BR-Merck Healthcare KGaA-2024020575

PATIENT
  Age: 59 Year
  Sex: Male

DRUGS (1)
  1. CETUXIMAB [Suspect]
     Active Substance: CETUXIMAB
     Indication: Salivary gland cancer
     Dosage: 692 MG, OTHER (ONCE IN 21 DAYS)
     Route: 042
     Dates: start: 20231025

REACTIONS (6)
  - Dysphagia [Not Recovered/Not Resolved]
  - Muscular weakness [Not Recovered/Not Resolved]
  - Weight decreased [Recovering/Resolving]
  - Off label use [Not Recovered/Not Resolved]
  - Throat tightness [Unknown]
  - Alopecia [Recovering/Resolving]

NARRATIVE: CASE EVENT DATE: 20230101
